FAERS Safety Report 25661934 (Version 1)
Quarter: 2025Q3

REPORT INFORMATION
  Report Type: Spontaneous
  Country: US (occurrence: US)
  Receive Date: 20250809
  Receipt Date: 20250809
  Transmission Date: 20251021
  Serious: Yes (Other)
  Sender: AMGEN
  Company Number: US-AMGEN-USASP2025155176

PATIENT
  Age: 73 Year
  Sex: Female
  Weight: 87.6 kg

DRUGS (37)
  1. TEPEZZA [Suspect]
     Active Substance: TEPROTUMUMAB-TRBW
     Indication: Hyperthyroidism
     Dosage: 809.2 MILLIGRAM, (FIRST INFUSION)
     Route: 040
     Dates: start: 20211025
  2. TEPEZZA [Suspect]
     Active Substance: TEPROTUMUMAB-TRBW
     Dosage: 1570.8 MILLIGRAM, Q3WK, (SECOND INFUSION)
     Route: 040
     Dates: start: 20211115
  3. TEPEZZA [Suspect]
     Active Substance: TEPROTUMUMAB-TRBW
     Dosage: 1618.4 MILLIGRAM, Q3WK, (THIRD INFUSION)
     Route: 040
     Dates: start: 20211206
  4. TEPEZZA [Suspect]
     Active Substance: TEPROTUMUMAB-TRBW
     Dosage: 1618.4 MILLIGRAM, Q3WK, (FOURTH INFUSION)
     Route: 040
     Dates: start: 20211227
  5. TEPEZZA [Suspect]
     Active Substance: TEPROTUMUMAB-TRBW
     Dosage: 1618.4 MILLIGRAM, Q3WK, (FIFTH INFUSION)
     Route: 040
     Dates: start: 20220117
  6. TEPEZZA [Suspect]
     Active Substance: TEPROTUMUMAB-TRBW
     Dosage: 1618.4 MILLIGRAM, Q3WK, (SIXTH INFUSION)
     Route: 040
     Dates: start: 20220207
  7. TEPEZZA [Suspect]
     Active Substance: TEPROTUMUMAB-TRBW
     Dosage: 1713.6 MILLIGRAM, Q3WK, (SEVEN INFUSION)
     Route: 040
     Dates: start: 20220228
  8. TEPEZZA [Suspect]
     Active Substance: TEPROTUMUMAB-TRBW
     Dosage: 1752 MILLIGRAM, Q3WK, (EIGHT INFUSION)
     Route: 040
     Dates: start: 20220321
  9. FUROSEMIDE [Concomitant]
     Active Substance: FUROSEMIDE
     Route: 048
  10. GLIPIZIDE [Concomitant]
     Active Substance: GLIPIZIDE
     Route: 048
  11. HYZAAR [Concomitant]
     Active Substance: HYDROCHLOROTHIAZIDE\LOSARTAN POTASSIUM
     Dosage: UNK UNK, QD
     Route: 048
  12. HYDROXYZINE HYDROCHLORIDE [Concomitant]
     Active Substance: HYDROXYZINE HYDROCHLORIDE
     Route: 048
  13. LABETALOL [Concomitant]
     Active Substance: LABETALOL
     Route: 048
  14. HYDROXYZINE [Concomitant]
     Active Substance: HYDROXYZINE HYDROCHLORIDE
     Route: 065
  15. KETOROLAC [Concomitant]
     Active Substance: KETOROLAC TROMETHAMINE
     Route: 065
  16. OFLOXACIN [Concomitant]
     Active Substance: OFLOXACIN
     Route: 065
  17. HYDROCHLOROTHIAZIDE\LOSARTAN [Concomitant]
     Active Substance: HYDROCHLOROTHIAZIDE\LOSARTAN
  18. LABETALOL HYDROCHLORIDE [Concomitant]
     Active Substance: LABETALOL HYDROCHLORIDE
  19. ELIQUIS [Concomitant]
     Active Substance: APIXABAN
     Route: 065
  20. METOPROLOL [Concomitant]
     Active Substance: METOPROLOL
  21. FLECAINIDE [Concomitant]
     Active Substance: FLECAINIDE
  22. LASIX [Concomitant]
     Active Substance: FUROSEMIDE
  23. REMERON [Concomitant]
     Active Substance: MIRTAZAPINE
  24. Ataraxone [Concomitant]
  25. DETROL LA [Concomitant]
     Active Substance: TOLTERODINE TARTRATE
  26. BRIMONIDINE [Concomitant]
     Active Substance: BRIMONIDINE TARTRATE
  27. TIMOLOL MALEATE [Concomitant]
     Active Substance: TIMOLOL MALEATE
  28. COMBIGAN [Concomitant]
     Active Substance: BRIMONIDINE TARTRATE\TIMOLOL MALEATE
  29. TIMOLOL [Concomitant]
     Active Substance: TIMOLOL
  30. DORZOLAMIDE\TIMOLOL [Concomitant]
     Active Substance: DORZOLAMIDE\TIMOLOL
  31. REFRESH CLASSIC [Concomitant]
     Active Substance: POLYVINYL ALCOHOL\POVIDONE
  32. CALCIUM [Concomitant]
     Active Substance: CALCIUM
  33. FLONASE [Concomitant]
     Active Substance: FLUTICASONE PROPIONATE
  34. VITAMIN D3 [Concomitant]
     Active Substance: CHOLECALCIFEROL
  35. METHIMAZOLE [Concomitant]
     Active Substance: METHIMAZOLE
  36. HYDROXYZINE HYDROCHLORIDE [Concomitant]
     Active Substance: HYDROXYZINE HYDROCHLORIDE
  37. MIRTAZAPINE [Concomitant]
     Active Substance: MIRTAZAPINE

REACTIONS (13)
  - Renal mass [Unknown]
  - Atrial fibrillation [Unknown]
  - Atrial flutter [Unknown]
  - Insomnia [Unknown]
  - Off label use [Unknown]
  - Mass [Unknown]
  - Pruritus [Unknown]
  - Urinary incontinence [Unknown]
  - Obstructive sleep apnoea syndrome [Unknown]
  - Tremor [Unknown]
  - Mobility decreased [Unknown]
  - Umbilical hernia [Unknown]
  - Alopecia [Unknown]

NARRATIVE: CASE EVENT DATE: 20211025
